FAERS Safety Report 4559628-0 (Version None)
Quarter: 2005Q1

REPORT INFORMATION
  Report Type: 
  Country: None (occurrence: None)
  Receive Date: 20050124
  Receipt Date: 20050112
  Transmission Date: 20050727
  Serious: Yes (Death)
  Sender: FDA-Public Use
  Company Number: FR-ABBOTT-05P-056-0287125-00

PATIENT
  Sex: Female

DRUGS (6)
  1. ERYTHROCINE [Suspect]
     Indication: DRUG EXPOSURE DURING PREGNANCY
  2. MIRTAZAPINE [Suspect]
     Indication: DRUG EXPOSURE DURING PREGNANCY
  3. PRAZEPAM [Suspect]
     Indication: DRUG EXPOSURE DURING PREGNANCY
  4. AMOXICILLIN [Suspect]
     Indication: DRUG EXPOSURE DURING PREGNANCY
  5. ZUCLOPENTHIXOL [Suspect]
     Indication: DRUG EXPOSURE DURING PREGNANCY
  6. FLUMAZENIL [Suspect]
     Indication: DRUG EXPOSURE DURING PREGNANCY

REACTIONS (6)
  - CARDIOMYOPATHY [None]
  - CONGENITAL DIAPHRAGMATIC HERNIA [None]
  - CYSTIC LYMPHANGIOMA [None]
  - DRUG EXPOSURE DURING PREGNANCY [None]
  - MULTIPLE CONGENITAL ABNORMALITIES [None]
  - RENAL CYST [None]
